FAERS Safety Report 13081849 (Version 1)
Quarter: 2017Q1

REPORT INFORMATION
  Report Type: Spontaneous
  Country: AU (occurrence: AU)
  Receive Date: 20170103
  Receipt Date: 20170103
  Transmission Date: 20170428
  Serious: Yes (Other)
  Sender: FDA-Public Use
  Company Number: AU-TEVA-723572ISR

PATIENT

DRUGS (1)
  1. COPAXONE [Suspect]
     Active Substance: GLATIRAMER ACETATE
     Dosage: UNKNOWN
     Route: 064

REACTIONS (4)
  - Continuous positive airway pressure [Unknown]
  - Exposure during pregnancy [Unknown]
  - Phototherapy [Unknown]
  - Premature baby [Unknown]

NARRATIVE: CASE EVENT DATE: 201610
